FAERS Safety Report 11813294 (Version 3)
Quarter: 2016Q1

REPORT INFORMATION
  Report Type: Spontaneous
  Country: JP (occurrence: JP)
  Receive Date: 20151209
  Receipt Date: 20160215
  Transmission Date: 20160525
  Serious: Yes (Death, Hospitalization)
  Sender: FDA-Public Use
  Company Number: JP-SUN PHARMACEUTICAL INDUSTRIES LTD-2015R1-107264

PATIENT
  Age: 55 Year
  Sex: Male

DRUGS (5)
  1. FLUOROURACIL. [Suspect]
     Active Substance: FLUOROURACIL
     Indication: NASOPHARYNGEAL CANCER
     Dosage: 600 MG/M2 X 5 DAYS
     Route: 065
  2. CISPLATIN. [Suspect]
     Active Substance: CISPLATIN
     Indication: NASOPHARYNGEAL CANCER
     Dosage: 60 MG/M2 X 1 DAY
     Route: 065
  3. CISPLATIN. [Suspect]
     Active Substance: CISPLATIN
     Indication: NASOPHARYNGEAL CANCER
     Dosage: TOTAL OF SIX CYCLES OF WEEKLY LOW-DOSE (CDDP:  20 MG/M2)
     Route: 065
  4. DOCETAXEL. [Suspect]
     Active Substance: DOCETAXEL
     Indication: NASOPHARYNGEAL CANCER
     Dosage: TOTAL OF SIX CYCLES OF WEEKLY LOW-DOSE (DTX: 10 MG/M2)
     Route: 065
  5. DOCETAXEL. [Suspect]
     Active Substance: DOCETAXEL
     Indication: NASOPHARYNGEAL CANCER
     Dosage: DTX: 60MG/M^2 X 1 DAY
     Route: 065

REACTIONS (7)
  - Acute respiratory distress syndrome [Fatal]
  - Cytomegalovirus infection [Fatal]
  - Stomatitis [Unknown]
  - Febrile neutropenia [Fatal]
  - Pneumonia staphylococcal [Fatal]
  - Enteritis [Fatal]
  - Shock [Fatal]
